FAERS Safety Report 7964619-3 (Version None)
Quarter: 2011Q4

REPORT INFORMATION
  Report Type: 
  Country: None (occurrence: None)
  Receive Date: 20111121
  Receipt Date: 20110722
  Transmission Date: 20120403
  Serious: No
  Sender: FDA-Public Use
  Company Number: 1000022407

PATIENT
  Age: 52 Year
  Sex: Female

DRUGS (15)
  1. VIIBRYD [Suspect]
     Indication: DEPRESSION
     Dosage: 10 MG (10 MG, 1 IN 1 D), ORAL 20 MG (20 MG, 1 IN 1 D), ORAL 40 MG (40 MG, 1 IN 1 D), ORAL
     Route: 048
     Dates: start: 20110630, end: 20110706
  2. VIIBRYD [Suspect]
     Indication: DEPRESSION
     Dosage: 10 MG (10 MG, 1 IN 1 D), ORAL 20 MG (20 MG, 1 IN 1 D), ORAL 40 MG (40 MG, 1 IN 1 D), ORAL
     Route: 048
     Dates: start: 20110714
  3. VIIBRYD [Suspect]
     Indication: DEPRESSION
     Dosage: 10 MG (10 MG, 1 IN 1 D), ORAL 20 MG (20 MG, 1 IN 1 D), ORAL 40 MG (40 MG, 1 IN 1 D), ORAL
     Route: 048
     Dates: start: 20110707, end: 20110713
  4. VALACYCLOVIR (VALACYCLOVIR) (TABLETS) (VALACYCLOVIR) [Concomitant]
  5. GABAPENTIN (GABAPENTIN) (600 MILLIGRAM, TABLETS) (GABAPENTIN) [Concomitant]
  6. LEVOTHYROXINE (LEVOTHYROXINE SODIUM) (LEVOTHYROXINE SODIUM) [Concomitant]
  7. OXYCONTIN (OXYCODONE HYDROCHLORIDE) (OXYCODONE HYDROCHLORIDE) [Concomitant]
  8. ARTHROTEC (DICLOFENAC + MISOPROSTOL) (TABLETS) (DICLOFENAC + MISOPROST [Concomitant]
  9. MORPHINE SULFATE (MORPHINE SULFATE) (TABLETS) (MORPHINE SULFATE) [Concomitant]
  10. ESTRADIOL [Concomitant]
  11. ZYRTEC (CETERIZINE) (CETERIZINE) [Concomitant]
  12. CLONAZEPAM (CLONAZEPAM) (TABLETS) (CLONAZEPAM) [Concomitant]
  13. SEROQUEL (QUETIAPINE) (TABLETS) (QUETIAPINE) [Concomitant]
  14. PROPRANOLOL (PROPRANOLOL) (TABLETS) (PROPRANOLOL) [Concomitant]
  15. DEXTROAMPHETAMINE (DEXTROAMPHETAMINE) (5 MILLIGRAM, TABLETS) (DEXTROAM [Concomitant]

REACTIONS (3)
  - TERMINAL INSOMNIA [None]
  - CONTUSION [None]
  - JOINT SWELLING [None]
